FAERS Safety Report 18807883 (Version 2)
Quarter: 2021Q1

REPORT INFORMATION
  Report Type: Spontaneous
  Country: DE (occurrence: DE)
  Receive Date: 20210129
  Receipt Date: 20210222
  Transmission Date: 20210419
  Serious: Yes (Other)
  Sender: FDA-Public Use
  Company Number: DE-BAYER-2021-024417

PATIENT
  Age: 40 Year
  Sex: Female

DRUGS (1)
  1. BETAFERON [Suspect]
     Active Substance: INTERFERON BETA-1B
     Indication: RELAPSING MULTIPLE SCLEROSIS
     Dosage: 250 ?G/ML
     Route: 058
     Dates: start: 2010

REACTIONS (1)
  - Monoclonal B-cell lymphocytosis [None]
